FAERS Safety Report 7518417-5 (Version None)
Quarter: 2011Q2

REPORT INFORMATION
  Report Type: 
  Country: None (occurrence: None)
  Receive Date: 20110523
  Receipt Date: 20110506
  Transmission Date: 20111010
  Serious: Yes (Hospitalization)
  Sender: FDA-Public Use
  Company Number: 2011-00513

PATIENT
  Age: 5 Year
  Sex: Male

DRUGS (8)
  1. VALPROIC ACID (VALPROATE SODIUM)(UNKNOWN) [Concomitant]
  2. CEFOTAXIME [Suspect]
     Indication: PNEUMONIA MYCOPLASMAL
  3. ERYTHROMYCIN [Suspect]
     Indication: PNEUMONIA MYCOPLASMAL
  4. PIPERACILLIN AND TAZOBACTAM [Suspect]
     Indication: PNEUMONIA MYCOPLASMAL
  5. LAMOTRIGINE [Suspect]
     Indication: CONVULSION
  6. GENTAMICIN [Suspect]
     Indication: PNEUMONIA MYCOPLASMAL
  7. PHENYTOIN [Suspect]
     Indication: STATUS EPILEPTICUS
  8. CLOBAZAM (UNKNOWN) [Concomitant]

REACTIONS (13)
  - STATUS EPILEPTICUS [None]
  - LEARNING DISORDER [None]
  - DYSTONIA [None]
  - AKINESIA [None]
  - CEREBRAL ATROPHY [None]
  - COGNITIVE DISORDER [None]
  - APHASIA [None]
  - HYPOTONIA [None]
  - MOVEMENT DISORDER [None]
  - BRAIN OEDEMA [None]
  - PNEUMONIA MYCOPLASMAL [None]
  - HYPOXIC-ISCHAEMIC ENCEPHALOPATHY [None]
  - PYREXIA [None]
